FAERS Safety Report 4507767-2 (Version None)
Quarter: 2004Q4

REPORT INFORMATION
  Report Type: 
  Country: None (occurrence: None)
  Receive Date: 20041123
  Receipt Date: 20041108
  Transmission Date: 20050328
  Serious: Yes (Hospitalization)
  Sender: FDA-Public Use
  Company Number: DE-JNJFOC-20041102397

PATIENT
  Age: 53 Year
  Sex: Male
  Weight: 121 kg

DRUGS (38)
  1. RISPERDAL [Suspect]
     Route: 049
  2. RISPERDAL [Suspect]
     Route: 049
  3. RISPERDAL [Suspect]
     Route: 049
  4. RISPERDAL [Suspect]
     Route: 049
  5. RISPERDAL [Suspect]
     Route: 049
  6. RISPERDAL [Suspect]
     Route: 049
  7. RISPERDAL [Suspect]
     Route: 049
  8. RISPERDAL [Suspect]
     Indication: DRUG USE FOR UNKNOWN INDICATION
     Route: 049
  9. HALDOL [Suspect]
     Indication: DRUG USE FOR UNKNOWN INDICATION
     Route: 049
  10. QUILONUM RETARD [Suspect]
     Dosage: 1 TABLET
  11. LITHIUM CARBONATE [Suspect]
     Dosage: 2 TABLETS
  12. QUILONUM RETARD [Suspect]
     Dosage: 2 TABLETS
  13. LITHIUM CARBONATE [Suspect]
     Dosage: 1.5 TABLETS
  14. QUILONUM RETARD [Suspect]
     Dosage: 1 TABLET
  15. LITHIUM CARBONATE [Suspect]
     Dosage: 2.5 TABLETS
  16. QUILONUM RETARD [Suspect]
     Dosage: 1 TABLET
  17. LITHIUM CARBONATE [Suspect]
     Indication: DRUG USE FOR UNKNOWN INDICATION
     Dosage: 2.5 TABLETS
  18. ERGENYL [Suspect]
     Route: 049
  19. ERGENYL [Suspect]
     Route: 049
  20. ERGENYL [Suspect]
     Route: 049
  21. ERGENYL [Suspect]
     Route: 049
  22. ERGENYL [Suspect]
     Route: 049
  23. ERGENYL [Suspect]
     Route: 049
  24. ERGENYL [Suspect]
     Indication: DRUG USE FOR UNKNOWN INDICATION
     Route: 049
  25. HALDOL [Concomitant]
     Route: 030
  26. TAXILAN [Concomitant]
     Route: 049
  27. TAXILAN [Concomitant]
     Route: 049
  28. DIAZEPAM [Concomitant]
     Route: 049
  29. DIAZEPAM [Concomitant]
     Route: 049
  30. DIAZEPAM [Concomitant]
     Route: 049
  31. DIAZEPAM [Concomitant]
     Route: 049
  32. DIAZEPAM [Concomitant]
     Route: 049
  33. BENALAPRIL [Concomitant]
     Route: 049
  34. BENALAPRIL [Concomitant]
     Route: 049
  35. THYRONAJOD [Concomitant]
     Route: 049
  36. THYRONAJOD [Concomitant]
     Route: 049
  37. KALINOR [Concomitant]
     Dosage: 1 TABLET
  38. HYDROCHLOROTHIAZIDE [Concomitant]

REACTIONS (12)
  - ANTICONVULSANT DRUG LEVEL BELOW THERAPEUTIC [None]
  - ANTIPSYCHOTIC DRUG LEVEL ABOVE THERAPEUTIC [None]
  - BLOOD CREATINE PHOSPHOKINASE MB INCREASED [None]
  - CSF OLIGOCLONAL BAND PRESENT [None]
  - DEHYDRATION [None]
  - ELECTROCARDIOGRAM QT CORRECTED INTERVAL PROLONGED [None]
  - EXTRAPYRAMIDAL DISORDER [None]
  - EYELID OEDEMA [None]
  - FALL [None]
  - HEPATITIS [None]
  - INFECTION [None]
  - NEPHROPATHY TOXIC [None]
